FAERS Safety Report 22654557 (Version 1)
Quarter: 2023Q2

REPORT INFORMATION
  Report Type: Spontaneous
  Country: IE (occurrence: IE)
  Receive Date: 20230629
  Receipt Date: 20230629
  Transmission Date: 20230721
  Serious: Yes (Hospitalization, Other)
  Sender: FDA-Public Use
  Company Number: IE-BAXTER-2023BAX023244

PATIENT
  Sex: Male

DRUGS (5)
  1. DEXTROSE [Suspect]
     Active Substance: DEXTROSE\DEXTROSE MONOHYDRATE
     Indication: Medication dilution
     Dosage: 500 ML
     Route: 042
     Dates: end: 20230503
  2. OXALIPLATIN [Suspect]
     Active Substance: OXALIPLATIN
     Dosage: 260 MG AT UNSPECIFIED FREQUENCY IN 500 ML GLUCOSE (TOTAL VOLUME: 552 (UNITS NOT REPORTED))
     Route: 042
     Dates: end: 20230503
  3. HYDROCORTISONE [Suspect]
     Active Substance: HYDROCORTISONE
     Indication: Drug hypersensitivity
     Dosage: 100 MG AT UNSPECIFIED FREQUENCY
     Route: 042
     Dates: start: 20230503, end: 20230503
  4. CHLORPHENIRAMINE MALEATE [Suspect]
     Active Substance: CHLORPHENIRAMINE MALEATE
     Indication: Drug hypersensitivity
     Dosage: 10 MG AT UNSPECIFIED FREQUENCY
     Route: 042
     Dates: start: 20230503, end: 20230503
  5. OXYGEN [Suspect]
     Active Substance: OXYGEN
     Indication: Adverse reaction
     Dosage: 10 L AT UNSPECIFIED FREQUENCY
     Dates: start: 20230503

REACTIONS (6)
  - Oxygen saturation decreased [Unknown]
  - Drug hypersensitivity [Recovered/Resolved with Sequelae]
  - Bronchospasm [Unknown]
  - Dyspnoea [Unknown]
  - Hypoaesthesia [Unknown]
  - Paraesthesia [Unknown]

NARRATIVE: CASE EVENT DATE: 20230503
